FAERS Safety Report 24114213 (Version 1)
Quarter: 2024Q3

REPORT INFORMATION
  Report Type: Spontaneous
  Country: RO (occurrence: RO)
  Receive Date: 20240720
  Receipt Date: 20240720
  Transmission Date: 20241017
  Serious: Yes (Hospitalization, Other)
  Sender: ABBVIE
  Company Number: RO-ABBVIE-5844035

PATIENT
  Age: 55 Year
  Sex: Male
  Weight: 105 kg

DRUGS (1)
  1. SKYRIZI [Suspect]
     Active Substance: RISANKIZUMAB-RZAA
     Indication: Psoriasis
     Route: 058
     Dates: start: 202307

REACTIONS (1)
  - Adenocarcinoma of colon [Recovering/Resolving]

NARRATIVE: CASE EVENT DATE: 20240420
